FAERS Safety Report 13359865 (Version 1)
Quarter: 2017Q1

REPORT INFORMATION
  Report Type: Spontaneous
  Country: US (occurrence: US)
  Receive Date: 20170322
  Receipt Date: 20170322
  Transmission Date: 20170429
  Serious: No
  Sender: FDA-Public Use
  Company Number: US-ASTRAZENECA-2017SE27220

PATIENT
  Age: 26539 Day
  Sex: Female
  Weight: 84.4 kg

DRUGS (2)
  1. BRILINTA [Suspect]
     Active Substance: TICAGRELOR
     Indication: STENT PLACEMENT
     Route: 048
     Dates: start: 20170303
  2. ASPIRIN. [Concomitant]
     Active Substance: ASPIRIN
     Indication: HEART INJURY
     Route: 048
     Dates: start: 20170303

REACTIONS (4)
  - Constipation [Recovered/Resolved]
  - Diarrhoea [Recovered/Resolved]
  - Asthenia [Not Recovered/Not Resolved]
  - Fatigue [Recovering/Resolving]

NARRATIVE: CASE EVENT DATE: 20170303
